FAERS Safety Report 13376186 (Version 1)
Quarter: 2017Q1

REPORT INFORMATION
  Report Type: Spontaneous
  Country: IT (occurrence: IT)
  Receive Date: 20170328
  Receipt Date: 20170328
  Transmission Date: 20170429
  Serious: Yes (Hospitalization)
  Sender: FDA-Public Use
  Company Number: IT-AMGEN-ITASP2017044180

PATIENT
  Age: 73 Year
  Sex: Male
  Weight: 55 kg

DRUGS (10)
  1. FOLINIC ACID [Concomitant]
     Active Substance: LEUCOVORIN
     Indication: COLON CANCER METASTATIC
     Dosage: UNK
     Dates: start: 20161018, end: 20161213
  2. LEVOFOLENE [Concomitant]
     Active Substance: LEVOLEUCOVORIN CALCIUM
     Indication: CHEMOTHERAPY
     Dosage: 150 MG, UNK
     Route: 042
     Dates: start: 20161018, end: 20161213
  3. FARLUTAL [Concomitant]
     Active Substance: MEDROXYPROGESTERONE ACETATE
     Dosage: UNK (1 POSOLOGIC UNIT, 500MG/5ML)
     Route: 048
  4. FLUOROURACIL. [Concomitant]
     Active Substance: FLUOROURACIL
     Dosage: UNK UNK, CYCLICAL (5G 100ML BOTTLE 600MG X 2 BOLUS + 1800 MG CONTINUOUS INFUSION / CYCLE)
     Route: 040
  5. OMEPRAZOL [Concomitant]
     Active Substance: OMEPRAZOLE
     Indication: PROPHYLAXIS AGAINST GASTROINTESTINAL ULCER
     Dosage: 40 MG, UNK
     Route: 048
  6. FLUOROURACIL. [Concomitant]
     Active Substance: FLUOROURACIL
     Indication: COLON CANCER METASTATIC
     Dosage: 3000 MG, UNK
     Route: 042
     Dates: start: 20161018, end: 20161213
  7. CLEXANE [Concomitant]
     Active Substance: ENOXAPARIN SODIUM
     Indication: VENOUS THROMBOSIS
     Dosage: 4000 IU, UNK (4000 INTERNATIONAL UNIT, IN THOUSANDS)
     Route: 058
  8. VECTIBIX [Suspect]
     Active Substance: PANITUMUMAB
     Indication: COLON CANCER METASTATIC
     Dosage: 300 MG, CYCLICAL (300 MILLIGRAMS/CYCLIC)
     Route: 042
     Dates: start: 20161018, end: 20161213
  9. CLEXANE [Concomitant]
     Active Substance: ENOXAPARIN SODIUM
     Dosage: 6000 IU, UNK (SUBCUTANEOUS SYRINGES 6000 UL X 2)
     Route: 058
  10. OXALIPLATIN SUN [Concomitant]
     Active Substance: OXALIPLATIN
     Indication: COLON CANCER METASTATIC
     Dosage: 120 MG, UNK
     Route: 042
     Dates: start: 20161018, end: 20161213

REACTIONS (1)
  - Venous thrombosis [Recovered/Resolved]

NARRATIVE: CASE EVENT DATE: 20161230
